FAERS Safety Report 9677601 (Version 1)
Quarter: 2013Q4

REPORT INFORMATION
  Report Type: Spontaneous
  Country: NO (occurrence: NO)
  Receive Date: 20131108
  Receipt Date: 20131108
  Transmission Date: 20140711
  Serious: Yes (Other)
  Sender: FDA-Public Use
  Company Number: NO-JNJFOC-20131100664

PATIENT
  Age: 32 Year
  Sex: Male

DRUGS (1)
  1. REMICADE [Suspect]
     Indication: CROHN^S DISEASE
     Route: 042

REACTIONS (2)
  - Depression [Unknown]
  - Psychotic disorder [Recovered/Resolved]
